FAERS Safety Report 7103104-8 (Version None)
Quarter: 2010Q4

REPORT INFORMATION
  Report Type: 
  Country: None (occurrence: None)
  Receive Date: 20101115
  Receipt Date: 20090205
  Transmission Date: 20110411
  Serious: No
  Sender: FDA-Public Use
  Company Number: US-KINGPHARMUSA00001-K200900117

PATIENT
  Sex: Female

DRUGS (1)
  1. SONATA [Suspect]
     Dosage: 10 MG, DAILY
     Dates: start: 20090202, end: 20090202

REACTIONS (5)
  - AMNESIA [None]
  - BLOOD PRESSURE INCREASED [None]
  - HEART RATE INCREASED [None]
  - OVERDOSE [None]
  - SOMNAMBULISM [None]
